FAERS Safety Report 24914344 (Version 1)
Quarter: 2025Q1

REPORT INFORMATION
  Report Type: Spontaneous
  Country: IR (occurrence: IR)
  Receive Date: 20250203
  Receipt Date: 20250203
  Transmission Date: 20250408
  Serious: Yes (Congenital Anomaly)
  Sender: STRIDES
  Company Number: IR-STRIDES ARCOLAB LIMITED-2025SP001476

PATIENT
  Sex: Male

DRUGS (1)
  1. SERTRALINE [Suspect]
     Active Substance: SERTRALINE HYDROCHLORIDE
     Indication: Product used for unknown indication
     Route: 064

REACTIONS (2)
  - Ductus arteriosus stenosis foetal [Recovered/Resolved]
  - Foetal exposure during pregnancy [Unknown]
